FAERS Safety Report 8608231 (Version 3)
Quarter: 2014Q1

REPORT INFORMATION
  Report Type: Spontaneous
  Country: US (occurrence: US)
  Receive Date: 20120611
  Receipt Date: 20140124
  Transmission Date: 20141002
  Serious: Yes (Hospitalization, Other)
  Sender: FDA-Public Use
  Company Number: US-ASTRAZENECA-2012SE35432

PATIENT
  Age: 29363 Day
  Sex: Female

DRUGS (21)
  1. NEXIUM [Suspect]
     Indication: HIATUS HERNIA
     Dosage: ONCE A DAY
     Route: 048
  2. NEXIUM [Suspect]
     Indication: HIATUS HERNIA
     Route: 048
     Dates: start: 20110725
  3. NEXIUM [Suspect]
     Indication: HIATUS HERNIA
     Route: 048
     Dates: start: 20120301
  4. PRILOSEC [Suspect]
     Route: 048
     Dates: start: 19991030
  5. ROLAIDS [Concomitant]
  6. TUMS [Concomitant]
  7. ZOCOR [Concomitant]
     Dates: start: 19991030
  8. LEXAPRO [Concomitant]
     Indication: DEPRESSION
  9. WELLBUTRIN [Concomitant]
  10. LISINOPRIL [Concomitant]
     Dates: start: 20110725
  11. CARDIAZEM [Concomitant]
  12. PLAVIX [Concomitant]
  13. ASA [Concomitant]
     Dates: start: 20110725
  14. LIPITOR [Concomitant]
     Indication: HYPERLIPIDAEMIA
     Dates: start: 20110725
  15. TRAMADOL [Concomitant]
     Dates: start: 20110725
  16. TRAMADOL [Concomitant]
     Dates: start: 20110725
  17. LORTAB [Concomitant]
     Dosage: PRN
     Dates: start: 20110725
  18. INDERAL LA [Concomitant]
  19. ZETIA [Concomitant]
     Indication: HYPERLIPIDAEMIA
     Dates: start: 20110725
  20. PREDNISONE [Concomitant]
  21. AMOXICILLIN [Concomitant]
     Dates: start: 20070129

REACTIONS (14)
  - Spinal compression fracture [Unknown]
  - Hip fracture [Unknown]
  - Sinus disorder [Unknown]
  - Fall [Unknown]
  - Anaemia [Unknown]
  - Contusion [Unknown]
  - Femur fracture [Unknown]
  - Hypokalaemia [Recovered/Resolved]
  - Osteoporosis [Unknown]
  - Ulna fracture [Unknown]
  - Bone disorder [Unknown]
  - Bone pain [Unknown]
  - Arthritis [Unknown]
  - Radius fracture [Unknown]
